FAERS Safety Report 8532612-8 (Version None)
Quarter: 2012Q3

REPORT INFORMATION
  Report Type: 
  Country: None (occurrence: None)
  Receive Date: 20120724
  Receipt Date: 20120712
  Transmission Date: 20120928
  Serious: Yes (Hospitalization)
  Sender: FDA-Public Use
  Company Number: GB-AMGEN-GBRCT2012044491

PATIENT
  Age: 51 Year
  Sex: Female
  Weight: 84 kg

DRUGS (8)
  1. PROTHIADEN [Concomitant]
     Route: 065
  2. IRBESARTAN [Concomitant]
     Route: 065
  3. METHOTREXATE [Concomitant]
     Route: 065
  4. ACETAMINOPHEN AND CODEINE PHOSPHATE [Concomitant]
     Route: 065
  5. PREDNISOLONE [Concomitant]
     Route: 065
  6. DICLOFENAC [Concomitant]
     Route: 065
  7. CIMETIDINE [Concomitant]
     Route: 065
  8. ETANERCEPT [Suspect]
     Indication: RHEUMATOID ARTHRITIS
     Dosage: 25 MG, 2 TIMES/WK
     Route: 058
     Dates: start: 20080401

REACTIONS (4)
  - LITHOTRIPSY [None]
  - CYSTOSCOPY [None]
  - CALCULUS URETERIC [None]
  - URETEROSCOPY [None]
